FAERS Safety Report 9934642 (Version 2)
Quarter: 2014Q2

REPORT INFORMATION
  Report Type: Report from Study
  Country: JP (occurrence: JP)
  Receive Date: 20140228
  Receipt Date: 20140407
  Transmission Date: 20141212
  Serious: Yes (Death, Life-Threatening)
  Sender: FDA-Public Use
  Company Number: JP-CUBIST PHARMACEUTICAL, INC.-2014CBST000286

PATIENT
  Sex: 0

DRUGS (20)
  1. CUBICIN [Suspect]
     Indication: STAPHYLOCOCCAL SKIN INFECTION
     Dosage: 5.4 MG/KG, ONCE DAILY
     Route: 041
     Dates: start: 20131125, end: 20131128
  2. CUBICIN [Suspect]
     Indication: SOFT TISSUE INFECTION
     Dosage: 4.5 MG/KG, ONCE DAILY
     Route: 041
     Dates: start: 20131129, end: 20131129
  3. CUBICIN [Suspect]
     Dosage: 4.5 MG/KG, ONCE EVERY SECOND DAY
     Route: 041
     Dates: start: 20131130, end: 20131204
  4. TIENAM [Concomitant]
     Indication: PRODUCT USED FOR UNKNOWN INDICATION
     Dosage: 1 G, QD
     Route: 041
     Dates: start: 20131115, end: 20131125
  5. ROCALTROL [Concomitant]
     Indication: PRODUCT USED FOR UNKNOWN INDICATION
     Dosage: 0.5 ??G, ONCE DAILY
     Route: 048
     Dates: start: 2012, end: 20131204
  6. CALCIUM COMPOUNDS AND PREPARATIONS [Concomitant]
     Indication: PRODUCT USED FOR UNKNOWN INDICATION
     Dosage: 2 G, BID
     Route: 048
     Dates: start: 201302, end: 20131204
  7. AMLODIPINE                         /00972402/ [Concomitant]
     Indication: PRODUCT USED FOR UNKNOWN INDICATION
     Dosage: 5 MG, ONCE DAILY
     Route: 048
     Dates: start: 2012, end: 20131204
  8. ATORVASTATIN [Concomitant]
     Indication: PRODUCT USED FOR UNKNOWN INDICATION
     Dosage: 250 ??G, ONCE DAILY
     Route: 048
     Dates: start: 2012, end: 20131204
  9. GASTER D [Concomitant]
     Indication: PRODUCT USED FOR UNKNOWN INDICATION
     Dosage: 20 MG, ONCE DAILY
     Route: 048
     Dates: start: 2012, end: 20131204
  10. VOLTAREN                           /00372302/ [Concomitant]
     Indication: PRODUCT USED FOR UNKNOWN INDICATION
     Dosage: 25 MG, BID
     Route: 048
     Dates: start: 201305, end: 20131204
  11. LASIX                              /00032601/ [Concomitant]
     Indication: PRODUCT USED FOR UNKNOWN INDICATION
     Dosage: 20 MG, ONCE DAILY
     Route: 048
     Dates: start: 201308, end: 20131204
  12. MUCODYNE [Concomitant]
     Indication: PRODUCTIVE COUGH
     Dosage: 500 MG, TID
     Route: 048
     Dates: start: 20131118, end: 20131204
  13. NAIXAN                             /00256201/ [Concomitant]
     Indication: PAIN MANAGEMENT
     Dosage: 100 MG, ONCE DAILY
     Route: 048
     Dates: start: 20131112, end: 20131204
  14. OXYCONTIN [Concomitant]
     Indication: ANALGESIC THERAPY
     Dosage: 10 MG, ONCE A DAY
     Route: 048
     Dates: start: 20131130, end: 20131204
  15. FLOMOX [Concomitant]
     Indication: STAPHYLOCOCCAL SKIN INFECTION
     Dosage: 100 MG, BID
     Route: 048
     Dates: start: 20131121, end: 20131127
  16. MODACIN [Concomitant]
     Indication: STAPHYLOCOCCAL SKIN INFECTION
     Dosage: 1 G, ONCE DAILY
     Route: 051
     Dates: start: 20131125, end: 20131125
  17. MODACIN [Concomitant]
     Dosage: 1 G, BID
     Route: 051
     Dates: start: 20131126, end: 20131128
  18. MODACIN [Concomitant]
     Dosage: 1 G, ONCE DAILY
     Route: 051
     Dates: start: 20131129, end: 20131204
  19. MORPHINE HYDROCHLORIDE [Concomitant]
     Indication: PRODUCT USED FOR UNKNOWN INDICATION
     Dosage: 10 ??G, ONCE DAILY
     Route: 051
     Dates: start: 20131204, end: 20131205
  20. OMEPRAL                            /00661201/ [Concomitant]
     Indication: PRODUCT USED FOR UNKNOWN INDICATION
     Dosage: 20 MG, ONCE DAILY
     Route: 051
     Dates: start: 20131204, end: 20131205

REACTIONS (3)
  - Renal impairment [Fatal]
  - Prostate cancer [Fatal]
  - Overdose [Unknown]
